FAERS Safety Report 5821617-3 (Version None)
Quarter: 2008Q3

REPORT INFORMATION
  Report Type: 
  Country: None (occurrence: None)
  Receive Date: 20080714
  Receipt Date: 20070806
  Transmission Date: 20090109
  Serious: Yes (Disabling)
  Sender: FDA-Public Use
  Company Number: 496590

PATIENT
  Age: 53 Year
  Sex: Female

DRUGS (4)
  1. BONIVA [Suspect]
     Indication: OSTEOPENIA
     Dosage: 150 MG 1 PER MONTH ORAL
     Route: 048
     Dates: start: 20070424, end: 20070424
  2. VITAMIN D NOS (VITAMIN D NOS) [Concomitant]
  3. ADVIL [Concomitant]
  4. SALINE NASAL SPRAY (SODIUM CHLORIDE) [Concomitant]

REACTIONS (4)
  - EYE SWELLING [None]
  - NASAL OEDEMA [None]
  - RASH [None]
  - RASH MACULAR [None]
